FAERS Safety Report 10516586 (Version 1)
Quarter: 2014Q4

REPORT INFORMATION
  Report Type: Spontaneous
  Country: US (occurrence: US)
  Receive Date: 20141014
  Receipt Date: 20141014
  Transmission Date: 20150528
  Serious: Yes (Death, Other)
  Sender: FDA-Public Use
  Company Number: US-GLAXOSMITHKLINE-US2014GSK005616

PATIENT
  Age: 79 Year
  Sex: Female

DRUGS (1)
  1. MEKINIST [Suspect]
     Active Substance: TRAMETINIB DIMETHYL SULFOXIDE
     Indication: ILL-DEFINED DISORDER
     Dosage: 2 MG, QD
     Route: 048
     Dates: start: 20140710, end: 20140722

REACTIONS (1)
  - Death [Fatal]

NARRATIVE: CASE EVENT DATE: 20140722
